FAERS Safety Report 6249999-1 (Version None)
Quarter: 2009Q2

REPORT INFORMATION
  Report Type: 
  Country: None (occurrence: None)
  Receive Date: 20090625
  Receipt Date: 20090617
  Transmission Date: 20091009
  Serious: Yes (Hospitalization)
  Sender: FDA-Public Use
  Company Number: SPV1-2009-01267

PATIENT
  Age: 14 Year
  Sex: Male

DRUGS (1)
  1. ELAPRASE [Suspect]
     Indication: MUCOPOLYSACCHARIDOSIS II
     Dosage: UNK, UNK, IV DRIP
     Route: 041
     Dates: start: 20080626

REACTIONS (12)
  - ANAEMIA [None]
  - BACTERIAL INFECTION [None]
  - BRONCHOSPASM [None]
  - CARDIAC FAILURE [None]
  - HYDROCEPHALUS [None]
  - HYPERTENSION [None]
  - INFUSION RELATED REACTION [None]
  - MALNUTRITION [None]
  - POST PROCEDURAL COMPLICATION [None]
  - PYREXIA [None]
  - RASH [None]
  - TACHYCARDIA [None]
